FAERS Safety Report 8802906 (Version 2)
Quarter: 2012Q4

REPORT INFORMATION
  Report Type: 
  Country: FI (occurrence: FI)
  Receive Date: 20120922
  Receipt Date: 20120928
  Transmission Date: 20130627
  Serious: Yes (Death)
  Sender: FDA-Public Use
  Company Number: FI-B.I. PHARMACEUTICALS,INC./RIDGEFIELD-2012-SW-00723SF

PATIENT
  Age: 65 Year
  Sex: Female

DRUGS (5)
  1. PRADAXA [Suspect]
     Indication: ATRIAL FIBRILLATION
     Dosage: 300 mg
     Dates: end: 20120910
  2. PRADAXA [Suspect]
     Dosage: 300 mg
     Dates: start: 20120914
  3. CARDACE [Concomitant]
     Indication: HYPERTENSION
     Dosage: Strength: 10 mg
  4. ORLOC [Concomitant]
     Indication: HYPERTENSION
     Dosage: Strength: 5 mg
  5. BURANA [Concomitant]
     Indication: PAIN

REACTIONS (10)
  - Death [Fatal]
  - Malaise [Fatal]
  - Hypotension [Fatal]
  - Sepsis [Fatal]
  - Abdominal distension [Fatal]
  - Thrombosis [Fatal]
  - Abnormal clotting factor [Fatal]
  - Mucosal haemorrhage [Fatal]
  - Injection site haemorrhage [Fatal]
  - Disseminated intravascular coagulation [Fatal]
